FAERS Safety Report 7601719-1 (Version None)
Quarter: 2011Q2

REPORT INFORMATION
  Report Type: 
  Country: None (occurrence: None)
  Receive Date: 20110629
  Receipt Date: 20101112
  Transmission Date: 20111010
  Serious: Yes (Other)
  Sender: FDA-Public Use
  Company Number: 742089

PATIENT
  Sex: Female

DRUGS (1)
  1. KLONOPIN [Suspect]
     Indication: EPSTEIN-BARR VIRUS INFECTION

REACTIONS (3)
  - MEMORY IMPAIRMENT [None]
  - HALLUCINATION, AUDITORY [None]
  - SUICIDAL IDEATION [None]
